FAERS Safety Report 22017511 (Version 1)
Quarter: 2023Q1

REPORT INFORMATION
  Report Type: Other
  Country: None (occurrence: DE)
  Receive Date: 20230221
  Receipt Date: 20230221
  Transmission Date: 20230417
  Serious: Yes (Death, Life-Threatening, Other)
  Sender: FDA-Public Use
  Company Number: DE-B.Braun Medical Inc.-2138250

PATIENT
  Age: 3 Year
  Sex: Male

DRUGS (5)
  1. MANNITOL [Suspect]
     Active Substance: MANNITOL
     Indication: Intracranial pressure increased
  2. MIDAZOLAM [Suspect]
     Active Substance: MIDAZOLAM
  3. CLONAZEPAM [Suspect]
     Active Substance: CLONAZEPAM
  4. PHENOBARBITAL [Suspect]
     Active Substance: PHENOBARBITAL
  5. DEXTROSE [Suspect]
     Active Substance: DEXTROSE

REACTIONS (1)
  - Drug ineffective [Fatal]
